FAERS Safety Report 13286187 (Version 28)
Quarter: 2019Q3

REPORT INFORMATION
  Report Type: Report from Study
  Country: US (occurrence: US)
  Receive Date: 20170301
  Receipt Date: 20190820
  Transmission Date: 20191004
  Serious: Yes (Hospitalization)
  Sender: FDA-Public Use
  Company Number: US-ACTELION-A-US2017-150363

PATIENT
  Age: 45 Year
  Sex: Male
  Weight: 90.25 kg

DRUGS (8)
  1. VELETRI [Suspect]
     Active Substance: EPOPROSTENOL
     Dosage: 40.74 NG/KG, PER MIN
     Route: 042
  2. ELIQUIS [Concomitant]
     Active Substance: APIXABAN
     Dosage: 5 MG, Q12HRS
  3. VELETRI [Suspect]
     Active Substance: EPOPROSTENOL
     Dosage: 45.38 NG/KG, PER MIN
     Route: 042
  4. COUMADIN [Concomitant]
     Active Substance: WARFARIN SODIUM
  5. VELETRI [Suspect]
     Active Substance: EPOPROSTENOL
     Dosage: 45.61 NG/KG, PER MIN
     Route: 042
  6. VELETRI [Suspect]
     Active Substance: EPOPROSTENOL
     Indication: PULMONARY ARTERIAL HYPERTENSION
     Dosage: 45.61 NG/KG, PER MIN
     Route: 042
  7. VELETRI [Suspect]
     Active Substance: EPOPROSTENOL
     Dosage: 46.61 NG/KG, PER MIN
     Route: 042
  8. LETAIRIS [Suspect]
     Active Substance: AMBRISENTAN
     Indication: PRODUCT USED FOR UNKNOWN INDICATION
     Dosage: 10 MG, QD
     Route: 065
     Dates: end: 201905

REACTIONS (49)
  - Fluid overload [Unknown]
  - Cough [Unknown]
  - Device dislocation [Unknown]
  - Hospitalisation [Unknown]
  - Dyspnoea exertional [Unknown]
  - Oedema peripheral [Unknown]
  - Pollakiuria [Unknown]
  - Malaise [Unknown]
  - Weight increased [Unknown]
  - Catheter management [Unknown]
  - Flushing [Unknown]
  - Device damage [Recovered/Resolved]
  - Atrial flutter [Unknown]
  - Dyspnoea [Unknown]
  - Coronary artery disease [Unknown]
  - Nasopharyngitis [Unknown]
  - Device issue [Unknown]
  - Catheter site erythema [Unknown]
  - Device leakage [Recovered/Resolved]
  - Atrial fibrillation [Unknown]
  - Pain in extremity [Unknown]
  - Palpitations [Unknown]
  - Chest discomfort [Unknown]
  - Skin discolouration [Unknown]
  - Headache [Unknown]
  - Weight decreased [Unknown]
  - Catheter site pain [Unknown]
  - Swelling [Unknown]
  - Heart rate increased [Unknown]
  - Somnolence [Unknown]
  - Peripheral swelling [Unknown]
  - Dizziness [Unknown]
  - Pulmonary thrombosis [Unknown]
  - Fatigue [Unknown]
  - Lower respiratory tract infection [Unknown]
  - Feeling jittery [Recovering/Resolving]
  - Influenza [Unknown]
  - Erythema [Unknown]
  - Cardiac failure congestive [Unknown]
  - Fluid retention [Unknown]
  - Chest pain [Unknown]
  - Feeling cold [Unknown]
  - Pain [Unknown]
  - Pain in jaw [Unknown]
  - Cholelithiasis [Unknown]
  - Cholecystectomy [Unknown]
  - Blood pressure abnormal [Unknown]
  - Sinus headache [Unknown]
  - Sinus congestion [Unknown]

NARRATIVE: CASE EVENT DATE: 20190316
